FAERS Safety Report 17111343 (Version 1)
Quarter: 2019Q4

REPORT INFORMATION
  Report Type: Spontaneous
  Country: JP (occurrence: JP)
  Receive Date: 20191204
  Receipt Date: 20191204
  Transmission Date: 20200122
  Serious: Yes (Hospitalization, Other)
  Sender: FDA-Public Use
  Company Number: JP-JNJFOC-20191138145

PATIENT
  Age: 87 Year
  Sex: Female
  Weight: 29.6 kg

DRUGS (7)
  1. DONEPEZIL HYDROCHLORIDE OD [Concomitant]
     Active Substance: DONEPEZIL HYDROCHLORIDE
     Dosage: UNKNOWN
     Route: 048
  2. BIO-THREE [Concomitant]
     Active Substance: HERBALS
     Dosage: AFTER EACH MEAL
     Route: 048
  3. BAKTAR [Concomitant]
     Active Substance: SULFAMETHOXAZOLE\TRIMETHOPRIM
     Dosage: UNKNOWN
     Route: 048
  4. DONEPEZIL HYDROCHLORIDE OD [Concomitant]
     Active Substance: DONEPEZIL HYDROCHLORIDE
     Dosage: AFTER BREAKFAST
     Route: 048
     Dates: start: 20191112
  5. DOMPERIDONE [Suspect]
     Active Substance: DOMPERIDONE
     Indication: EXTRADURAL ABSCESS
     Route: 048
     Dates: start: 20191013, end: 20191119
  6. MINOCYCLINE HYDROCHLORIDE. [Suspect]
     Active Substance: MINOCYCLINE HYDROCHLORIDE
     Indication: SPONDYLITIS
     Route: 048
     Dates: start: 20191029
  7. REMINYL [Suspect]
     Active Substance: GALANTAMINE
     Indication: DEMENTIA
     Dosage: OFF-LABEL USE 11 GALANTAMINE HYDROBROMIDE: 4MG
     Route: 048
     Dates: end: 20191111

REACTIONS (5)
  - Vomiting [Unknown]
  - Diarrhoea [Recovering/Resolving]
  - Off label use [Unknown]
  - Inappropriate schedule of product administration [Unknown]
  - Renal impairment [Unknown]

NARRATIVE: CASE EVENT DATE: 201910
